FAERS Safety Report 25734366 (Version 1)
Quarter: 2025Q3

REPORT INFORMATION
  Report Type: Spontaneous
  Country: US (occurrence: US)
  Receive Date: 20250828
  Receipt Date: 20250828
  Transmission Date: 20251021
  Serious: No
  Sender: HETERO
  Company Number: US-HETERO-HET2025US04949

PATIENT
  Age: 76 Year
  Sex: Male
  Weight: 224 kg

DRUGS (17)
  1. TORSEMIDE [Suspect]
     Active Substance: TORSEMIDE
     Indication: Renal disorder
     Route: 048
     Dates: start: 20250812, end: 20250813
  2. TORSEMIDE [Suspect]
     Active Substance: TORSEMIDE
     Indication: Peripheral swelling
  3. ALTACE [Concomitant]
     Active Substance: RAMIPRIL
     Indication: Product used for unknown indication
     Route: 065
  4. ASPIRIN [Concomitant]
     Active Substance: ASPIRIN
     Indication: Product used for unknown indication
     Route: 065
  5. 12 VITAMINS [ASCORBIC ACID;BIOTIN;COLECALCIFEROL;DEXPANTHENOL;FOLIC AC [Concomitant]
     Indication: Product used for unknown indication
     Route: 065
  6. CALCIUM [Concomitant]
     Active Substance: CALCIUM
     Indication: Product used for unknown indication
     Route: 065
  7. COLACE [Concomitant]
     Active Substance: DOCUSATE SODIUM
     Indication: Product used for unknown indication
     Route: 065
  8. DESLORATADINE [Concomitant]
     Active Substance: DESLORATADINE
     Indication: Product used for unknown indication
     Route: 065
  9. FISH OIL [Concomitant]
     Active Substance: FISH OIL
     Indication: Product used for unknown indication
     Route: 065
  10. IRON [Concomitant]
     Active Substance: IRON
     Indication: Product used for unknown indication
     Route: 065
  11. KERENDIA [Concomitant]
     Active Substance: FINERENONE
     Indication: Product used for unknown indication
     Route: 065
  12. LIPITOR [Concomitant]
     Active Substance: ATORVASTATIN CALCIUM
     Indication: Product used for unknown indication
     Route: 065
  13. LOPERAMIDE HYDROCHLORIDE [Concomitant]
     Active Substance: LOPERAMIDE HYDROCHLORIDE
     Indication: Product used for unknown indication
     Route: 065
  14. LYRICA [Concomitant]
     Active Substance: PREGABALIN
     Indication: Product used for unknown indication
     Route: 065
  15. METHYL B 12 [Concomitant]
     Indication: Product used for unknown indication
     Route: 065
  16. ESOMEPRAZOLE MAGNESIUM [Concomitant]
     Active Substance: ESOMEPRAZOLE MAGNESIUM
     Indication: Product used for unknown indication
     Route: 065
  17. NOVOLOG [Concomitant]
     Active Substance: INSULIN ASPART
     Indication: Product used for unknown indication
     Route: 065

REACTIONS (2)
  - Chest pain [Unknown]
  - Back pain [Unknown]

NARRATIVE: CASE EVENT DATE: 20250813
